FAERS Safety Report 20007903 (Version 2)
Quarter: 2022Q1

REPORT INFORMATION
  Report Type: Spontaneous
  Country: DE (occurrence: DE)
  Receive Date: 20211028
  Receipt Date: 20220316
  Transmission Date: 20220423
  Serious: Yes (Hospitalization, Other)
  Sender: FDA-Public Use
  Company Number: DE-LESVI-2021000195

PATIENT
  Sex: Female

DRUGS (6)
  1. GABAPENTIN [Suspect]
     Active Substance: GABAPENTIN
     Indication: Pain
     Dosage: 300 MG
     Route: 048
     Dates: start: 20210924, end: 20210925
  2. GABAPENTIN [Suspect]
     Active Substance: GABAPENTIN
     Dosage: 300 MG
     Route: 048
     Dates: start: 20210926, end: 20210928
  3. GABAPENTIN [Suspect]
     Active Substance: GABAPENTIN
     Dosage: 800 MG
     Route: 048
     Dates: start: 20210925, end: 20210926
  4. PREDNISOLONE [Concomitant]
     Active Substance: PREDNISOLONE
     Indication: Adverse reaction
     Route: 048
  5. CETIRIZINE [Concomitant]
     Active Substance: CETIRIZINE HYDROCHLORIDE
     Indication: Adverse reaction
     Route: 048
  6. CORTISONE [Concomitant]
     Active Substance: CORTISONE

REACTIONS (7)
  - Restless legs syndrome [Unknown]
  - Burning sensation [Unknown]
  - Pruritus [Unknown]
  - Circulatory collapse [Unknown]
  - Urticaria [Unknown]
  - Nausea [Unknown]
  - Off label use [Unknown]

NARRATIVE: CASE EVENT DATE: 20210924
